FAERS Safety Report 20139540 (Version 1)
Quarter: 2021Q4

REPORT INFORMATION
  Report Type: Spontaneous
  Country: CN (occurrence: CN)
  Receive Date: 20211202
  Receipt Date: 20211202
  Transmission Date: 20220303
  Serious: Yes (Other)
  Sender: FDA-Public Use
  Company Number: CN-PFIZER INC-202101630227

PATIENT
  Age: 45 Year
  Sex: Female
  Weight: 60 kg

DRUGS (2)
  1. EPIRUBICIN HYDROCHLORIDE [Suspect]
     Active Substance: EPIRUBICIN HYDROCHLORIDE
     Indication: Breast cancer
     Dosage: 60 MG, 1X/DAY
     Route: 041
     Dates: start: 20211022, end: 20211022
  2. CYCLOPHOSPHAMIDE [Suspect]
     Active Substance: CYCLOPHOSPHAMIDE
     Indication: Breast cancer
     Dosage: 0.8 G, 1X/DAY
     Route: 041
     Dates: start: 20211022, end: 20211022

REACTIONS (3)
  - Drug-induced liver injury [Recovering/Resolving]
  - Transaminases increased [Recovering/Resolving]
  - Blood cholesterol increased [Unknown]

NARRATIVE: CASE EVENT DATE: 20211115
